FAERS Safety Report 8370042-2 (Version None)
Quarter: 2012Q2

REPORT INFORMATION
  Report Type: 
  Country: None (occurrence: None)
  Receive Date: 20120518
  Receipt Date: 20120510
  Transmission Date: 20120825
  Serious: Yes (Other)
  Sender: FDA-Public Use
  Company Number: US-UCBSA-056655

PATIENT
  Age: 39 Year
  Sex: Male

DRUGS (4)
  1. KEPPRA XR [Suspect]
     Route: 048
  2. XANAX [Concomitant]
     Indication: ANXIETY
     Dosage: 2 MG DAILY BID
     Route: 048
  3. HYDROCODONE [Concomitant]
     Indication: PAIN
  4. KEPPRA XR [Suspect]
     Route: 048
     Dates: start: 20110101

REACTIONS (7)
  - JAW FRACTURE [None]
  - LIGAMENT RUPTURE [None]
  - LACERATION [None]
  - ACCIDENT [None]
  - LIGAMENT INJURY [None]
  - JOINT INJURY [None]
  - MEDICATION ERROR [None]
